FAERS Safety Report 7691600-4 (Version None)
Quarter: 2011Q3

REPORT INFORMATION
  Report Type: 
  Country: None (occurrence: None)
  Receive Date: 20110818
  Receipt Date: 20110803
  Transmission Date: 20111222
  Serious: Yes (Other)
  Sender: FDA-Public Use
  Company Number: GB-WATSON-2011-12844

PATIENT
  Age: 24 Year
  Sex: Male

DRUGS (4)
  1. ESOMEPRAZOLE (UNKNOWN) [Suspect]
     Indication: PRODUCT USED FOR UNKNOWN INDICATION
     Dosage: UNK
  2. AZITHROMYCIN [Suspect]
     Indication: PRODUCT USED FOR UNKNOWN INDICATION
     Dosage: UNK
  3. CIPROFLOXACIN HCL [Suspect]
     Indication: PRODUCT USED FOR UNKNOWN INDICATION
     Dosage: UNK
  4. AZITHROMYCIN [Suspect]
     Indication: CYSTIC FIBROSIS
     Dosage: 500 MG, DAILY (8 MONTHS AFTER 1ST EVENT)

REACTIONS (3)
  - SMALL INTESTINAL OBSTRUCTION [None]
  - COLITIS [None]
  - PSEUDOMEMBRANOUS COLITIS [None]
